FAERS Safety Report 26009407 (Version 1)
Quarter: 2025Q4

REPORT INFORMATION
  Report Type: Spontaneous
  Country: EU (occurrence: EU)
  Receive Date: 20251107
  Receipt Date: 20251107
  Transmission Date: 20260117
  Serious: Yes (Other)
  Sender: ASTELLAS
  Company Number: EU-ASTELLAS-2025-AER-061105

PATIENT
  Age: 23 Year
  Sex: Female

DRUGS (6)
  1. XOSPATA [Suspect]
     Active Substance: GILTERITINIB
     Indication: Acute myeloid leukaemia refractory
     Route: 048
     Dates: start: 20240222
  2. THIOTEPA [Concomitant]
     Active Substance: THIOTEPA
     Indication: Acute myeloid leukaemia refractory
     Route: 065
     Dates: start: 20240712, end: 20240716
  3. TREOSULFAN [Concomitant]
     Active Substance: TREOSULFAN
     Indication: Acute myeloid leukaemia refractory
     Route: 065
     Dates: start: 20240712, end: 20240716
  4. FLUDARABINE [Concomitant]
     Active Substance: FLUDARABINE PHOSPHATE
     Indication: Acute myeloid leukaemia refractory
     Route: 065
     Dates: start: 20240712, end: 20240716
  5. MYCOPHENOLATE MOFETIL [Concomitant]
     Active Substance: MYCOPHENOLATE MOFETIL
     Indication: Immunosuppression
     Dosage: FROM DAY 0
     Route: 065
     Dates: start: 2024
  6. CYCLOSPORINE [Concomitant]
     Active Substance: CYCLOSPORINE
     Indication: Immunosuppression
     Dosage: FROM DAY 1 IN STANDARDIZED DOSES
     Route: 065
     Dates: start: 2024

REACTIONS (5)
  - Acute graft versus host disease in skin [Unknown]
  - Myelodysplastic syndrome [Unknown]
  - Marrow hyperplasia [Unknown]
  - Abdominal wall abscess [Unknown]
  - Acute febrile neutrophilic dermatosis [Unknown]

NARRATIVE: CASE EVENT DATE: 20240101
